FAERS Safety Report 8635538 (Version 4)
Quarter: 2012Q4

REPORT INFORMATION
  Report Type: 
  Country: US (occurrence: US)
  Receive Date: 20120626
  Receipt Date: 20120907
  Transmission Date: 20130627
  Serious: Yes (Congenital Anomaly)
  Sender: FDA-Public Use
  Company Number: US-VIIV HEALTHCARE LIMITED-A0982208A

PATIENT
  Sex: Male
  Weight: 3.7 kg

DRUGS (9)
  1. COMBIVIR [Suspect]
     Indication: ANTIRETROVIRAL THERAPY
     Dosage: 2TAB Per day
     Route: 064
     Dates: start: 20111110, end: 20120607
  2. REYATAZ [Suspect]
     Indication: ANTIRETROVIRAL THERAPY
     Dosage: 300MGD Per day
     Route: 064
  3. NORVIR [Suspect]
     Indication: ANTIRETROVIRAL THERAPY
     Dosage: 100MGD Per day
     Route: 064
  4. TRUVADA [Suspect]
     Indication: ANTIRETROVIRAL THERAPY
     Dosage: 1TAB Per day
     Route: 064
     Dates: end: 20111110
  5. RETROVIR [Concomitant]
     Indication: ANTIRETROVIRAL THERAPY
     Dosage: 2MGKH Single dose
     Route: 064
     Dates: start: 20120525, end: 20120525
  6. RETROVIR [Concomitant]
     Indication: ANTIRETROVIRAL THERAPY
     Dosage: 1MGKH Single dose
     Route: 064
     Dates: start: 20120525, end: 20120525
  7. FLUCONAZOL [Concomitant]
  8. TERAZOL CREAM [Concomitant]
  9. UNSPECIFIED MEDICATION [Concomitant]

REACTIONS (4)
  - Hydronephrosis [Unknown]
  - Pyelocaliectasis [Unknown]
  - Congenital megaureter [Unknown]
  - Foetal exposure during pregnancy [Unknown]
